FAERS Safety Report 6826137-5 (Version None)
Quarter: 2010Q3

REPORT INFORMATION
  Report Type: 
  Country: None (occurrence: None)
  Receive Date: 20100708
  Receipt Date: 20100708
  Transmission Date: 20110219
  Serious: Yes (Disabling, Other)
  Sender: FDA-Public Use
  Company Number: None

PATIENT
  Age: 69 Year
  Sex: Female
  Weight: 76.2043 kg

DRUGS (3)
  1. DORZOLAMIDE/TIMOL OP-SOL 10ML HI-TECH [Suspect]
     Indication: GLAUCOMA
     Dosage: INSTILL 1 DROP IN EACH EYE TWICE A DAY
     Dates: start: 20091101
  2. XALATAN [Concomitant]
  3. ALPHAGAN P [Concomitant]

REACTIONS (5)
  - BLINDNESS [None]
  - DIARRHOEA [None]
  - LOSS OF CONSCIOUSNESS [None]
  - NAUSEA [None]
  - VOMITING [None]
